FAERS Safety Report 10927158 (Version 4)
Quarter: 2015Q2

REPORT INFORMATION
  Report Type: Spontaneous
  Country: US (occurrence: US)
  Receive Date: 20150318
  Receipt Date: 20150513
  Transmission Date: 20150821
  Serious: Yes (Other)
  Sender: FDA-Public Use
  Company Number: US-GLAXOSMITHKLINE-US2015031781

PATIENT
  Sex: Female

DRUGS (3)
  1. LAMICTAL XR [Suspect]
     Active Substance: LAMOTRIGINE
     Indication: EPILEPSY
  2. LAMICTAL [Suspect]
     Active Substance: LAMOTRIGINE
     Indication: EPILEPSY
     Dosage: 150 MG, BID
     Route: 048
     Dates: start: 2001
  3. LAMICTAL [Suspect]
     Active Substance: LAMOTRIGINE
     Indication: NERVOUS SYSTEM DISORDER

REACTIONS (14)
  - Head discomfort [Recovering/Resolving]
  - Therapeutic response decreased [Recovering/Resolving]
  - Chest pain [Unknown]
  - Feeling abnormal [Recovering/Resolving]
  - Fatigue [Recovering/Resolving]
  - Disturbance in attention [Recovering/Resolving]
  - Mood altered [Recovering/Resolving]
  - Mental impairment [Recovering/Resolving]
  - Drug ineffective [Recovering/Resolving]
  - Insomnia [Recovering/Resolving]
  - Tinnitus [Recovering/Resolving]
  - Dizziness [Recovering/Resolving]
  - Incorrect dose administered [Recovering/Resolving]
  - Product quality issue [Unknown]
